FAERS Safety Report 5409010-9 (Version None)
Quarter: 2007Q3

REPORT INFORMATION
  Report Type: 
  Country: None (occurrence: None)
  Receive Date: 20070808
  Receipt Date: 20070724
  Transmission Date: 20080115
  Serious: Yes (Hospitalization, Other)
  Sender: FDA-Public Use
  Company Number: US-SHR-US-2007-027547

PATIENT
  Age: 64 Year
  Sex: Female
  Weight: 104.31 kg

DRUGS (4)
  1. BETASERON [Suspect]
     Indication: SECONDARY PROGRESSIVE MULTIPLE SCLEROSIS
     Dosage: 8 MIU, EVERY 2D
     Route: 058
     Dates: start: 19920101
  2. SYNTHROID [Concomitant]
     Dosage: 100 A?G, 1X/DAY
     Route: 048
  3. DETROL [Concomitant]
     Dosage: 4 MG, UNK
     Route: 048
  4. CORTICOSTEROIDS [Concomitant]

REACTIONS (8)
  - ARTHRITIS [None]
  - CEREBELLAR ATROPHY [None]
  - CEREBRAL ATROPHY [None]
  - INTERVERTEBRAL DISC DEGENERATION [None]
  - INTERVERTEBRAL DISC DISORDER [None]
  - INTERVERTEBRAL DISC PROTRUSION [None]
  - MUSCULOSKELETAL STIFFNESS [None]
  - SPINAL OSTEOARTHRITIS [None]
